FAERS Safety Report 8826095 (Version 1)
Quarter: 2012Q4

REPORT INFORMATION
  Report Type: Report from Study
  Country: US (occurrence: US)
  Receive Date: 20121005
  Receipt Date: 20121005
  Transmission Date: 20130627
  Serious: Yes (Other)
  Sender: FDA-Public Use
  Company Number: US-ABBOTT-12P-163-0988982-00

PATIENT
  Age: 70 Year
  Sex: Female

DRUGS (8)
  1. HUMIRA [Suspect]
     Indication: PSORIATIC ARTHROPATHY
     Dates: start: 200605, end: 200610
  2. HUMIRA [Suspect]
     Dates: start: 200611
  3. HUMIRA [Suspect]
     Dates: end: 200704
  4. HUMIRA [Suspect]
     Dates: start: 201007, end: 201009
  5. ENBREL [Suspect]
     Indication: PRODUCT USED FOR UNKNOWN INDICATION
  6. ENBREL [Suspect]
     Route: 050
     Dates: start: 2011, end: 201202
  7. METHOTREXATE [Concomitant]
     Indication: PRODUCT USED FOR UNKNOWN INDICATION
     Dates: start: 1992, end: 201108
  8. SALINE [Concomitant]
     Indication: SEASONAL ALLERGY

REACTIONS (9)
  - Bunion [Unknown]
  - Arthritis [Unknown]
  - Oedema peripheral [Unknown]
  - Sinusitis [Unknown]
  - Injection site pain [Unknown]
  - Scar [Unknown]
  - Hypoaesthesia [Unknown]
  - Drug ineffective [Unknown]
  - Seasonal allergy [Unknown]
